FAERS Safety Report 17028435 (Version 2)
Quarter: 2019Q4

REPORT INFORMATION
  Report Type: Not Available
  Country: US (occurrence: US)
  Receive Date: 20191113
  Receipt Date: 20191219
  Transmission Date: 20200122
  Serious: Yes (Other)
  Sender: FDA-Public Use
  Company Number: US-NEUROCRINE BIOSCIENCES INC.-2019NBI03285

PATIENT
  Age: 90 Year
  Sex: Male

DRUGS (9)
  1. INGREZZA [Suspect]
     Active Substance: VALBENAZINE
     Indication: ESSENTIAL TREMOR
     Route: 048
     Dates: start: 20190730, end: 20190806
  2. INGREZZA [Suspect]
     Active Substance: VALBENAZINE
     Route: 048
     Dates: start: 20190807
  3. REMERON [Concomitant]
     Active Substance: MIRTAZAPINE
     Route: 048
  4. ZOCOR [Concomitant]
     Active Substance: SIMVASTATIN
     Route: 048
  5. FLOMAX [Concomitant]
     Active Substance: TAMSULOSIN HYDROCHLORIDE
     Route: 048
  6. BACTRIM DS [Suspect]
     Active Substance: SULFAMETHOXAZOLE\TRIMETHOPRIM
     Indication: PRODUCT USED FOR UNKNOWN INDICATION
     Dosage: 800/160 MG
  7. CLONAZEPAM. [Concomitant]
     Active Substance: CLONAZEPAM
     Route: 048
  8. PROZAC [Concomitant]
     Active Substance: FLUOXETINE HYDROCHLORIDE
     Route: 048
  9. PROVIGIL [Concomitant]
     Active Substance: MODAFINIL
     Route: 048

REACTIONS (3)
  - Off label use [Unknown]
  - Therapeutic product effect decreased [None]
  - Post procedural infection [Recovered/Resolved]

NARRATIVE: CASE EVENT DATE: 2019
